FAERS Safety Report 16388884 (Version 2)
Quarter: 2019Q2

REPORT INFORMATION
  Report Type: Report from Study
  Country: JP (occurrence: JP)
  Receive Date: 20190604
  Receipt Date: 20190612
  Transmission Date: 20190711
  Serious: Yes (Hospitalization)
  Sender: FDA-Public Use
  Company Number: JP-GE HEALTHCARE LIFE SCIENCES-2019CSU002673

PATIENT

DRUGS (8)
  1. VIZAMYL [Suspect]
     Active Substance: FLUTEMETAMOL F-18
     Indication: POSITRON EMISSION TOMOGRAM
     Dosage: UNK UNK, SINGLE
     Route: 065
     Dates: start: 20190330, end: 20190330
  2. ADUCANUMAB [Suspect]
     Active Substance: ADUCANUMAB
     Indication: DEMENTIA ALZHEIMER^S TYPE
     Dosage: UNK
     Dates: start: 20170412, end: 20190313
  3. GALANTAMINE. [Concomitant]
     Active Substance: GALANTAMINE
     Dosage: 8 MG, BID
     Dates: start: 20160701
  4. AZILSARTAN [Concomitant]
     Active Substance: AZILSARTAN KAMEDOXOMIL
     Dosage: 40 MG, QD
     Dates: start: 20160507
  5. CILNIDIPINE [Concomitant]
     Active Substance: CILNIDIPINE
     Dosage: 10 MG, BID
     Dates: start: 20161128
  6. LOXOPROFEN [Concomitant]
     Active Substance: LOXOPROFEN
     Dosage: 100 MG, PRN
     Dates: start: 20180829
  7. VIZAMYL [Suspect]
     Active Substance: FLUTEMETAMOL F-18
     Indication: COMPUTERISED TOMOGRAM HEAD
  8. VIZAMYL [Suspect]
     Active Substance: FLUTEMETAMOL F-18
     Indication: DEMENTIA ALZHEIMER^S TYPE

REACTIONS (1)
  - Heat illness [Recovered/Resolved]

NARRATIVE: CASE EVENT DATE: 20190512
